FAERS Safety Report 6737746-6 (Version None)
Quarter: 2010Q2

REPORT INFORMATION
  Report Type: 
  Country: None (occurrence: None)
  Receive Date: 20100524
  Receipt Date: 20100518
  Transmission Date: 20101027
  Serious: Yes (Death)
  Sender: FDA-Public Use
  Company Number: PHHY2010MX19009

PATIENT
  Sex: Male

DRUGS (3)
  1. DIOVAN HCT [Suspect]
     Indication: HYPERTENSION
     Dosage: TABLET (160/25 MG) PER DAY
     Route: 048
     Dates: start: 20090115
  2. ZELMAC [Suspect]
     Indication: IRRITABLE BOWEL SYNDROME
     Dosage: 1 DF, QW
     Route: 048
     Dates: start: 20090801
  3. CORTISONE [Concomitant]
     Dosage: HALF TABLET PER DAY

REACTIONS (1)
  - BRONCHOPNEUMONIA [None]
